APPROVED DRUG PRODUCT: STERILE WATER FOR INJECTION
Active Ingredient: STERILE WATER FOR INJECTION
Strength: 100% (10ML)
Dosage Form/Route: LIQUID;N/A
Application: A217536 | Product #001 | TE Code: AP
Applicant: NEXUS PHARMACEUTICALS LLC
Approved: Jul 11, 2023 | RLD: No | RS: No | Type: RX